FAERS Safety Report 4373930-7 (Version None)
Quarter: 2004Q2

REPORT INFORMATION
  Report Type: 
  Country: None (occurrence: None)
  Receive Date: 20040604
  Receipt Date: 20040520
  Transmission Date: 20050107
  Serious: Yes (Hospitalization, Other)
  Sender: FDA-Public Use
  Company Number: USA-2002-0003048

PATIENT
  Age: 50 Year
  Sex: Female
  Weight: 51.7 kg

DRUGS (20)
  1. OXYCONTIN [Suspect]
     Indication: PAIN
     Dosage: 40 MG, BID,ORAL
     Route: 048
     Dates: start: 19991207, end: 20001001
  2. OXYCONTIN [Suspect]
     Indication: PAIN
     Dosage: 10 MG, BID
     Dates: start: 20000418
  3. OXYCONTIN [Suspect]
     Indication: PAIN
     Dosage: 10 MG, BID
     Dates: start: 20000706
  4. OXYCONTIN [Suspect]
     Indication: PAIN
     Dosage: 20 MG, ORAL
     Route: 048
     Dates: start: 20000510
  5. LORTAB [Concomitant]
  6. DURAGESIC [Concomitant]
  7. PHENERGAN [Concomitant]
  8. BIAXIN [Concomitant]
  9. FOSAMAX [Concomitant]
  10. ARAVA [Concomitant]
  11. DELTASONE [Concomitant]
  12. K-DUR 10 [Concomitant]
  13. CYPROHEPTADINE HCL [Concomitant]
  14. ALBUTEROL [Concomitant]
  15. DILAUDID [Concomitant]
  16. ALUPENT [Concomitant]
  17. PROPOXYPHENE HCL AND ACETAMINOPHEN [Concomitant]
  18. PREMARIN [Concomitant]
  19. HALOG (HALCINONIDE) [Concomitant]
  20. COMBIVENT [Concomitant]

REACTIONS (43)
  - AMNESIA [None]
  - ANXIETY [None]
  - ARTHRALGIA [None]
  - BENIGN NEOPLASM OF SKIN [None]
  - BLOOD THYROID STIMULATING HORMONE DECREASED [None]
  - BRONCHOSPASM [None]
  - CHEST PAIN [None]
  - CHEST WALL PAIN [None]
  - CHRONIC OBSTRUCTIVE AIRWAYS DISEASE EXACERBATED [None]
  - CONDITION AGGRAVATED [None]
  - DEHYDRATION [None]
  - DELUSION [None]
  - DIZZINESS [None]
  - DRUG ABUSER [None]
  - DRUG DEPENDENCE [None]
  - DRUG HYPERSENSITIVITY [None]
  - DRUG WITHDRAWAL SYNDROME [None]
  - ERYTHEMA [None]
  - GASTROENTERITIS [None]
  - HEADACHE [None]
  - HEART RATE INCREASED [None]
  - HEART RATE IRREGULAR [None]
  - HYPOKALAEMIA [None]
  - INFLUENZA [None]
  - INSOMNIA [None]
  - JOINT EFFUSION [None]
  - JOINT SWELLING [None]
  - KNEE ARTHROPLASTY [None]
  - LOBAR PNEUMONIA [None]
  - MAJOR DEPRESSION [None]
  - MUSCLE SPASMS [None]
  - NAUSEA [None]
  - NERVOUSNESS [None]
  - PAIN [None]
  - PAINFUL RESPIRATION [None]
  - PALPITATIONS [None]
  - PNEUMONIA [None]
  - PRURITUS [None]
  - PSYCHOTIC DISORDER [None]
  - PYREXIA [None]
  - RASH [None]
  - RHEUMATOID ARTHRITIS [None]
  - VOMITING [None]
